FAERS Safety Report 5381449-X (Version None)
Quarter: 2007Q2

REPORT INFORMATION
  Report Type: 
  Country: None (occurrence: None)
  Receive Date: 20070629
  Receipt Date: 20070315
  Transmission Date: 20071010
  Serious: Yes (Hospitalization)
  Sender: FDA-Public Use
  Company Number: US200703003152

PATIENT
  Sex: Female

DRUGS (1)
  1. HUMALOG [Suspect]
     Indication: DIABETES MELLITUS
     Dosage: SUB. PUMP
     Route: 058
     Dates: start: 19970101

REACTIONS (2)
  - BLOOD GLUCOSE INCREASED [None]
  - CHEST PAIN [None]
